FAERS Safety Report 10945276 (Version 1)
Quarter: 2015Q1

REPORT INFORMATION
  Report Type: Spontaneous
  Country: US (occurrence: None)
  Receive Date: 20150129
  Receipt Date: 20150129
  Transmission Date: 20150721
  Serious: No
  Sender: FDA-Public Use
  Company Number: A-US2014-104795

PATIENT
  Age: 44 Year
  Sex: Male

DRUGS (3)
  1. REVATIO (SILDENAFIL CITRATE) [Concomitant]
  2. VENTAVIS [Suspect]
     Active Substance: ILOPROST
     Indication: COR PULMONALE CHRONIC
     Dosage: 6-9X/DAY, RESPIRATORY
     Route: 055
     Dates: start: 20130529
  3. OPSUMIT [Suspect]
     Active Substance: MACITENTAN
     Indication: COR PULMONALE CHRONIC
     Route: 048
     Dates: start: 20140729

REACTIONS (1)
  - Ocular hyperaemia [None]
